FAERS Safety Report 8137646-3 (Version None)
Quarter: 2012Q1

REPORT INFORMATION
  Report Type: 
  Country: None (occurrence: None)
  Receive Date: 20120215
  Receipt Date: 20120209
  Transmission Date: 20120608
  Serious: Yes (Hospitalization)
  Sender: FDA-Public Use
  Company Number: US-PFIZER INC-2012035798

PATIENT
  Sex: Female
  Weight: 58.957 kg

DRUGS (8)
  1. PROPRANOLOL [Concomitant]
     Dosage: UNK
  2. NIFEDIPINE [Suspect]
     Indication: HYPERTENSION
     Dosage: UNK
     Dates: start: 20111101, end: 20111201
  3. SYNTHROID [Concomitant]
     Indication: HYPOTHYROIDISM
     Dosage: 100 UG, 1X/DAY
  4. PREMARIN [Concomitant]
     Dosage: 0.3 MG, 1X/DAY
  5. PROCARDIA XL [Concomitant]
     Indication: HYPERTENSION
     Dosage: UNK
     Dates: start: 19900101, end: 20111101
  6. DIOVAN [Concomitant]
     Dosage: 160 MG, 1X/DAY
  7. NEXIUM [Concomitant]
     Dosage: 40 MG, UNK
  8. XANAX [Concomitant]
     Dosage: UNK

REACTIONS (2)
  - PALPITATIONS [None]
  - PRODUCT SUBSTITUTION ISSUE [None]
